FAERS Safety Report 16207975 (Version 3)
Quarter: 2019Q3

REPORT INFORMATION
  Report Type: Report from Study
  Country: CA (occurrence: CA)
  Receive Date: 20190417
  Receipt Date: 20190821
  Transmission Date: 20191004
  Serious: Yes (Other)
  Sender: FDA-Public Use
  Company Number: CA-HLSUS-2019-CA-000434

PATIENT
  Age: 53 Year
  Sex: Female

DRUGS (1)
  1. CLOZARIL [Suspect]
     Active Substance: CLOZAPINE
     Dosage: 12.5 MG
     Route: 048
     Dates: start: 20190318, end: 20190411

REACTIONS (6)
  - Cardiomyopathy [Unknown]
  - Pyrexia [Not Recovered/Not Resolved]
  - Troponin increased [Unknown]
  - Blood pressure abnormal [Unknown]
  - Myocarditis [Unknown]
  - Arrhythmia [Unknown]

NARRATIVE: CASE EVENT DATE: 20190410
